FAERS Safety Report 21282349 (Version 1)
Quarter: 2022Q3

REPORT INFORMATION
  Report Type: Spontaneous
  Country: US (occurrence: None)
  Receive Date: 20220901
  Receipt Date: 20220901
  Transmission Date: 20221027
  Serious: No
  Sender: FDA-Public Use
  Company Number: None

PATIENT
  Age: 67 Year
  Sex: Female

DRUGS (1)
  1. BEBTELOVIMAB [Suspect]
     Active Substance: BEBTELOVIMAB
     Indication: COVID-19 treatment
     Dates: start: 20220817, end: 20220817

REACTIONS (3)
  - Hypotension [None]
  - Infusion related reaction [None]
  - Failure to thrive [None]

NARRATIVE: CASE EVENT DATE: 20220817
